FAERS Safety Report 6067008-4 (Version None)
Quarter: 2009Q1

REPORT INFORMATION
  Report Type: 
  Country: None (occurrence: None)
  Receive Date: 20090205
  Receipt Date: 20090129
  Transmission Date: 20090719
  Serious: Yes (Hospitalization)
  Sender: FDA-Public Use
  Company Number: JP-AVENTIS-200911004GDDC

PATIENT
  Age: 41 Year

DRUGS (4)
  1. AMARYL [Suspect]
  2. CODE UNBROKEN [Suspect]
     Indication: CARDIOVASCULAR DISORDER
     Route: 048
     Dates: start: 20090106
  3. MELBIN                             /00082702/ [Suspect]
  4. LIVALO [Concomitant]

REACTIONS (4)
  - DIABETES MELLITUS INADEQUATE CONTROL [None]
  - DIARRHOEA [None]
  - DIVERTICULITIS [None]
  - VOMITING [None]
